FAERS Safety Report 7388171-9 (Version None)
Quarter: 2011Q1

REPORT INFORMATION
  Report Type: 
  Country: None (occurrence: None)
  Receive Date: 20110324
  Receipt Date: 20110310
  Transmission Date: 20110831
  Serious: Yes (Hospitalization)
  Sender: FDA-Public Use
  Company Number: 029044

PATIENT
  Age: 75 Year
  Sex: Female

DRUGS (6)
  1. KEPPRA [Suspect]
     Dosage: INTRAVENOUS (NOT OTHERWISE SPECIFIED))
     Route: 042
     Dates: start: 20101001, end: 20101028
  2. LAROXYL [Concomitant]
  3. LEVOTHYROX [Concomitant]
  4. TARKA /01323401/ [Concomitant]
  5. NOZINAN /00038602/ [Concomitant]
  6. TEMESTA /00273201/ [Concomitant]

REACTIONS (5)
  - TOXIC SKIN ERUPTION [None]
  - SEPTIC SHOCK [None]
  - BACTERIAL PYELONEPHRITIS [None]
  - ESCHERICHIA URINARY TRACT INFECTION [None]
  - IATROGENIC INFECTION [None]
